FAERS Safety Report 17394069 (Version 1)
Quarter: 2020Q1

REPORT INFORMATION
  Report Type: Report from Study
  Country: None (occurrence: CO)
  Receive Date: 20200210
  Receipt Date: 20200210
  Transmission Date: 20200409
  Serious: Yes (Other)
  Sender: FDA-Public Use
  Company Number: CO-ABBVIE-20K-036-3268196-00

PATIENT
  Age: 51 Year
  Sex: Female
  Weight: 75 kg

DRUGS (4)
  1. HUMIRA [Suspect]
     Active Substance: ADALIMUMAB
     Indication: HIDRADENITIS
     Route: 058
     Dates: end: 20191230
  2. PREGABALIN. [Concomitant]
     Active Substance: PREGABALIN
     Indication: INTERVERTEBRAL DISC PROTRUSION
     Route: 048
     Dates: start: 2017
  3. HYDROCODONE BITARTRATE AND ACETAMINOPHEN [Concomitant]
     Active Substance: ACETAMINOPHEN\HYDROCODONE BITARTRATE
     Indication: SPINAL PAIN
     Route: 048
     Dates: start: 2015
  4. HUMIRA [Suspect]
     Active Substance: ADALIMUMAB
     Indication: HIDRADENITIS
     Route: 058

REACTIONS (5)
  - Hypertension [Recovering/Resolving]
  - Unevaluable event [Recovering/Resolving]
  - Tonsillitis [Recovering/Resolving]
  - Pharyngeal disorder [Recovering/Resolving]
  - Wound [Recovering/Resolving]

NARRATIVE: CASE EVENT DATE: 202001
